FAERS Safety Report 7036136-9 (Version None)
Quarter: 2010Q4

REPORT INFORMATION
  Report Type: 
  Country: None (occurrence: None)
  Receive Date: 20101008
  Receipt Date: 20100204
  Transmission Date: 20110411
  Serious: No
  Sender: FDA-Public Use
  Company Number: US-BRISTOL-MYERS SQUIBB COMPANY-14963904

PATIENT
  Age: 81 Year
  Sex: Female
  Weight: 63 kg

DRUGS (5)
  1. AVAPRO [Suspect]
     Indication: HYPERTENSION
     Dosage: NEW BOTTLE FROM 03FEB2010
  2. TOPROL-XL [Concomitant]
  3. EXCEDRIN (MIGRAINE) [Concomitant]
  4. HYDROCHLOROTHIAZIDE [Concomitant]
  5. MULTI-VITAMIN [Concomitant]

REACTIONS (1)
  - DYSGEUSIA [None]
